FAERS Safety Report 17572123 (Version 1)
Quarter: 2020Q1

REPORT INFORMATION
  Report Type: Spontaneous
  Country: US (occurrence: US)
  Receive Date: 20200323
  Receipt Date: 20200323
  Transmission Date: 20200409
  Serious: Yes (Other)
  Sender: FDA-Public Use
  Company Number: US-GLAXOSMITHKLINE-US2020049321

PATIENT
  Sex: Female

DRUGS (1)
  1. IMITREX [Suspect]
     Active Substance: SUMATRIPTAN SUCCINATE
     Indication: MIGRAINE
     Dosage: UNK
     Route: 065
     Dates: start: 2005

REACTIONS (6)
  - Condition aggravated [Unknown]
  - Ill-defined disorder [Unknown]
  - Hysterectomy [Unknown]
  - Disability [Unknown]
  - Endometriosis [Unknown]
  - Injection site pain [Unknown]

NARRATIVE: CASE EVENT DATE: 2005
